FAERS Safety Report 5055329-3 (Version None)
Quarter: 2006Q3

REPORT INFORMATION
  Report Type: 
  Country: None (occurrence: None)
  Receive Date: 20060714
  Receipt Date: 20060626
  Transmission Date: 20061208
  Serious: Yes (Disabling)
  Sender: FDA-Public Use
  Company Number: 224489

PATIENT
  Age: 56 Year
  Sex: Female

DRUGS (6)
  1. HERCEPTIN [Suspect]
     Indication: BREAST CANCER
     Dates: start: 20020515, end: 20060315
  2. EPIRUBICIN [Concomitant]
  3. VINORELBINE [Concomitant]
  4. ZOMETA [Concomitant]
  5. TAXOL [Concomitant]
  6. CISPLATIN [Concomitant]

REACTIONS (5)
  - BLINDNESS [None]
  - HAEMATOTOXICITY [None]
  - OPTIC NEURITIS [None]
  - OPTIC NEUROPATHY [None]
  - PARAESTHESIA [None]
